FAERS Safety Report 16177660 (Version 2)
Quarter: 2020Q3

REPORT INFORMATION
  Report Type: Report from Study
  Country: FR (occurrence: FR)
  Receive Date: 20190410
  Receipt Date: 20200820
  Transmission Date: 20201102
  Serious: Yes (Hospitalization, Other)
  Sender: FDA-Public Use
  Company Number: FR-AUROBINDO-AUR-APL-2017-14871

PATIENT
  Age: 27 Year
  Sex: Female

DRUGS (2)
  1. IBUPROFEN. [Suspect]
     Active Substance: IBUPROFEN
     Indication: PRODUCT USED FOR UNKNOWN INDICATION
     Dosage: UNK
     Route: 065
  2. NIFLUMIC ACID [Suspect]
     Active Substance: NIFLUMIC ACID
     Indication: PRODUCT USED FOR UNKNOWN INDICATION
     Dosage: UNK
     Route: 065

REACTIONS (3)
  - Acute generalised exanthematous pustulosis [Recovered/Resolved]
  - Agranulocytosis [Recovered/Resolved]
  - Hepatocellular injury [Recovered/Resolved]
